FAERS Safety Report 17842655 (Version 4)
Quarter: 2020Q2

REPORT INFORMATION
  Report Type: Spontaneous
  Country: JP (occurrence: JP)
  Receive Date: 20200529
  Receipt Date: 20200618
  Transmission Date: 20200714
  Serious: Yes (Death)
  Sender: FDA-Public Use
  Company Number: JP-JNJFOC-20200530029

PATIENT
  Age: 8 Decade
  Sex: Male

DRUGS (5)
  1. XEPLION [Suspect]
     Active Substance: PALIPERIDONE PALMITATE
     Route: 030
     Dates: end: 20200427
  2. XEPLION [Suspect]
     Active Substance: PALIPERIDONE PALMITATE
  3. DEPAKENE [Concomitant]
     Active Substance: VALPROIC ACID
     Indication: AFFECT LABILITY
     Route: 048
  4. HALRACK [Concomitant]
     Active Substance: TRIAZOLAM
     Indication: PRODUCT USED FOR UNKNOWN INDICATION
     Route: 048
  5. XEPLION [Suspect]
     Active Substance: PALIPERIDONE PALMITATE
     Indication: PRODUCT USED FOR UNKNOWN INDICATION
     Route: 030

REACTIONS (3)
  - Neuroleptic malignant syndrome [Fatal]
  - Dyspnoea [Fatal]
  - Musculoskeletal stiffness [Fatal]

NARRATIVE: CASE EVENT DATE: 202005
